FAERS Safety Report 23364171 (Version 1)
Quarter: 2024Q1

REPORT INFORMATION
  Report Type: Spontaneous
  Country: LK (occurrence: LK)
  Receive Date: 20240104
  Receipt Date: 20240104
  Transmission Date: 20240410
  Serious: Yes (Hospitalization, Other)
  Sender: FDA-Public Use
  Company Number: LK-SUN PHARMACEUTICAL INDUSTRIES LTD-2023R1-425904

PATIENT
  Age: 34 Year
  Sex: Male
  Weight: 58.6 kg

DRUGS (2)
  1. COTRIMOXAZOLE [Suspect]
     Active Substance: SULFAMETHOXAZOLE\TRIMETHOPRIM
     Indication: Burkholderia pseudomallei infection
     Dosage: 1920 MILLIGRAM, BID
     Route: 048
  2. FOLIC ACID [Concomitant]
     Active Substance: FOLIC ACID
     Indication: Burkholderia pseudomallei infection
     Dosage: UNK
     Route: 065

REACTIONS (3)
  - Neutropenic sepsis [Recovering/Resolving]
  - Pneumonia [Recovering/Resolving]
  - Pyelonephritis [Recovering/Resolving]
